FAERS Safety Report 7661925 (Version 8)
Quarter: 2014Q1

REPORT INFORMATION
  Report Type: Spontaneous
  Country: US (occurrence: US)
  Receive Date: 20101109
  Receipt Date: 20140221
  Transmission Date: 20141002
  Serious: Yes (Hospitalization, Disabling, Other)
  Sender: FDA-Public Use
  Company Number: US-009507513-1010USA03509

PATIENT
  Sex: Female
  Weight: 85.26 kg

DRUGS (3)
  1. FOSAMAX [Suspect]
     Indication: OSTEOPENIA
     Dosage: 70 MG, QW
     Route: 048
     Dates: end: 20080705
  2. ALENDRONATE SODIUM [Suspect]
     Indication: OSTEOPENIA
     Dosage: 70 MG, QW
     Route: 048
     Dates: start: 20080626, end: 20080705
  3. HORMONES (UNSPECIFIED) [Concomitant]
     Dosage: UNK
     Dates: start: 1990

REACTIONS (37)
  - Intramedullary rod insertion [Unknown]
  - Medical device removal [Unknown]
  - Adverse event [Unknown]
  - Pyelonephritis [Unknown]
  - Nephrolithiasis [Unknown]
  - Bursitis [Unknown]
  - Dizziness [Unknown]
  - Femur fracture [Unknown]
  - Bone density decreased [Unknown]
  - Vitamin D deficiency [Unknown]
  - Urinary tract infection [Unknown]
  - Biopsy breast [Unknown]
  - Breast disorder female [Unknown]
  - Menopausal symptoms [Unknown]
  - Osteoporosis [Unknown]
  - Electrocardiogram T wave amplitude decreased [Unknown]
  - Device failure [Unknown]
  - Joint injury [Unknown]
  - Syncope [Unknown]
  - Sinus bradycardia [Unknown]
  - Central core disease [Unknown]
  - Laceration [Unknown]
  - Excoriation [Unknown]
  - Goitre [Unknown]
  - Spinal osteoarthritis [Unknown]
  - Intervertebral disc injury [Unknown]
  - Skin disorder [Unknown]
  - Osteoarthritis [Unknown]
  - Blood pressure systolic decreased [Unknown]
  - Anaemia [Unknown]
  - Tendonitis [Unknown]
  - Osteoarthritis [Unknown]
  - Vision blurred [Unknown]
  - Musculoskeletal pain [Unknown]
  - Limb discomfort [Unknown]
  - Pruritus [Unknown]
  - Drug ineffective [Unknown]
